FAERS Safety Report 9736660 (Version 1)
Quarter: 2013Q4

REPORT INFORMATION
  Report Type: Spontaneous
  Country: US (occurrence: US)
  Receive Date: 20131206
  Receipt Date: 20131206
  Transmission Date: 20140711
  Serious: No
  Sender: FDA-Public Use
  Company Number: US-GILEAD-2009-0022796

PATIENT
  Sex: Female
  Weight: 102.96 kg

DRUGS (18)
  1. LETAIRIS [Suspect]
     Indication: PULMONARY ARTERIAL HYPERTENSION
     Route: 048
     Dates: start: 20090306
  2. COUMADIN [Concomitant]
  3. LEVEMIR [Concomitant]
  4. BENZONATATE [Concomitant]
  5. ERY-TAB [Concomitant]
  6. PROMETHAZINE [Concomitant]
  7. VITAMIN D [Concomitant]
  8. DETROL LA [Concomitant]
  9. BACTRIM [Concomitant]
  10. IMDUR [Concomitant]
  11. PREDNISONE [Concomitant]
  12. LANTUS [Concomitant]
  13. FUROSEMIDE [Concomitant]
  14. POTASSIUM CHLORIDE [Concomitant]
  15. PRINIVIL [Concomitant]
  16. EFFEXOR [Concomitant]
  17. PRAVACHOL [Concomitant]
  18. HUMALOG [Concomitant]

REACTIONS (1)
  - Local swelling [Recovering/Resolving]
